FAERS Safety Report 5446935-2 (Version None)
Quarter: 2007Q3

REPORT INFORMATION
  Report Type: 
  Country: None (occurrence: None)
  Receive Date: 20070907
  Receipt Date: 20070830
  Transmission Date: 20080115
  Serious: Yes (Life-Threatening, Hospitalization, Other)
  Sender: FDA-Public Use
  Company Number: GB-MERCK-0708GBR00133

PATIENT
  Age: 62 Year
  Sex: Female
  Weight: 57 kg

DRUGS (5)
  1. FOSAMAX [Suspect]
     Route: 048
     Dates: start: 20060601, end: 20061001
  2. CALCIUM CARBONATE [Concomitant]
     Route: 048
     Dates: start: 20060201
  3. ANASTROZOLE [Concomitant]
     Route: 048
     Dates: start: 20051101
  4. ACETAMINOPHEN AND DIHYDROCODEINE BITARTRATE [Concomitant]
     Route: 048
  5. ZOPICLONE [Concomitant]
     Route: 048

REACTIONS (1)
  - TUBULOINTERSTITIAL NEPHRITIS [None]
